FAERS Safety Report 4694150-2 (Version None)
Quarter: 2005Q2

REPORT INFORMATION
  Report Type: 
  Country: None (occurrence: None)
  Receive Date: 20050616
  Receipt Date: 20050616
  Transmission Date: 20051028
  Serious: No
  Sender: FDA-Public Use
  Company Number: None

PATIENT
  Sex: Male

DRUGS (2)
  1. VIAGRA [Suspect]
  2. NIFEDIPINE [Concomitant]

REACTIONS (2)
  - RETINAL VASCULAR OCCLUSION [None]
  - VISUAL FIELD DEFECT [None]
